FAERS Safety Report 14225882 (Version 4)
Quarter: 2018Q4

REPORT INFORMATION
  Report Type: Spontaneous
  Country: US (occurrence: US)
  Receive Date: 20171127
  Receipt Date: 20181005
  Transmission Date: 20190204
  Serious: Yes (Hospitalization, Other)
  Sender: FDA-Public Use
  Company Number: US-ASTRAZENECA-2017SF15935

PATIENT
  Age: 27994 Day
  Sex: Male
  Weight: 100.2 kg

DRUGS (3)
  1. BYDUREON [Suspect]
     Active Substance: EXENATIDE
     Indication: TYPE 2 DIABETES MELLITUS
     Route: 058
     Dates: start: 201807
  2. NOVOLOG [Concomitant]
     Active Substance: INSULIN ASPART
     Dosage: BEFORE MEALS
  3. BYDUREON [Suspect]
     Active Substance: EXENATIDE
     Indication: TYPE 2 DIABETES MELLITUS
     Route: 058
     Dates: start: 201805

REACTIONS (12)
  - Fall [Recovering/Resolving]
  - Diabetes mellitus inadequate control [Unknown]
  - Animal bite [Not Recovered/Not Resolved]
  - Device issue [Unknown]
  - Blood glucose increased [Not Recovered/Not Resolved]
  - Injection site haemorrhage [Unknown]
  - Sepsis [Recovering/Resolving]
  - Injection site extravasation [Unknown]
  - Circumstance or information capable of leading to medication error [Unknown]
  - Underdose [Unknown]
  - Injection site bruising [Unknown]
  - Injection site pain [Unknown]

NARRATIVE: CASE EVENT DATE: 20180731
